FAERS Safety Report 6416666-0 (Version None)
Quarter: 2009Q4

REPORT INFORMATION
  Report Type: 
  Country: None (occurrence: None)
  Receive Date: 20091027
  Receipt Date: 20091015
  Transmission Date: 20100525
  Serious: Yes (Other)
  Sender: FDA-Public Use
  Company Number: GB-PFIZER INC-2009283440

PATIENT
  Age: 24 Year

DRUGS (4)
  1. PHENYTOIN AND PHENYTOIN SODIUM [Suspect]
     Indication: GRAND MAL CONVULSION
     Dosage: 250 MG, UNK
     Route: 048
     Dates: start: 20090814, end: 20090930
  2. RALTEGRAVIR [Suspect]
     Dosage: 400 MG, UNK
     Route: 048
     Dates: start: 20090902, end: 20090930
  3. VALPROIC ACID [Suspect]
     Dosage: UNK
  4. TRIZIVIR [Suspect]
     Dosage: UNK
     Dates: start: 20090902, end: 20090930

REACTIONS (2)
  - DERMATITIS EXFOLIATIVE [None]
  - FACE OEDEMA [None]
